FAERS Safety Report 7055043-9 (Version None)
Quarter: 2010Q4

REPORT INFORMATION
  Report Type: 
  Country: None (occurrence: None)
  Receive Date: 20101021
  Receipt Date: 20101013
  Transmission Date: 20110411
  Serious: Yes (Hospitalization)
  Sender: FDA-Public Use
  Company Number: US-JNJFOC-20101004177

PATIENT
  Sex: Female
  Weight: 56.7 kg

DRUGS (4)
  1. DURAGESIC-100 [Suspect]
     Indication: FIBROMYALGIA
     Dosage: NDC# 50458-093-05
     Route: 062
  2. DURAGESIC-100 [Suspect]
     Indication: ARTHRITIS
     Dosage: NDC# 50458-093-05
     Route: 062
  3. DURAGESIC-100 [Suspect]
     Route: 062
  4. DURAGESIC-100 [Suspect]
     Route: 062

REACTIONS (2)
  - BREAST CANCER [None]
  - PRODUCT ADHESION ISSUE [None]
